FAERS Safety Report 6766896-3 (Version None)
Quarter: 2010Q2

REPORT INFORMATION
  Report Type: 
  Country: None (occurrence: None)
  Receive Date: 20100609
  Receipt Date: 20100525
  Transmission Date: 20101027
  Serious: Yes (Other)
  Sender: FDA-Public Use
  Company Number: 2010002120

PATIENT
  Age: 69 Year
  Sex: Female
  Weight: 46.1 kg

DRUGS (6)
  1. ERLOTINIB                   (ERLOTINIB) (TABLET) [Suspect]
     Indication: LUNG ADENOCARCINOMA
     Dosage: (150 MG,QD),ORAL
     Route: 048
     Dates: start: 20081127, end: 20090201
  2. ETODOLAC [Concomitant]
  3. HUSCODE (HUSCODE) [Concomitant]
  4. LEVOTHYROXINE SODIUM [Concomitant]
  5. DILTIAZEM [Concomitant]
  6. GLUTAMINE/ SODIUM GUALENATE [Concomitant]

REACTIONS (8)
  - DIARRHOEA [None]
  - DRUG HYPERSENSITIVITY [None]
  - EXFOLIATIVE RASH [None]
  - LUNG ADENOCARCINOMA [None]
  - MALIGNANT NEOPLASM PROGRESSION [None]
  - MOUTH ULCERATION [None]
  - PARONYCHIA [None]
  - PURPURA [None]
